FAERS Safety Report 18035520 (Version 3)
Quarter: 2021Q3

REPORT INFORMATION
  Report Type: Other
  Country: JP (occurrence: JP)
  Receive Date: 20200717
  Receipt Date: 20210722
  Transmission Date: 20211014
  Serious: Yes (Hospitalization)
  Sender: FDA-Public Use
  Company Number: JP-ROCHE-2642804

PATIENT
  Age: 31 Year
  Sex: Male
  Weight: 64 kg

DRUGS (3)
  1. EMICIZUMAB. [Suspect]
     Active Substance: EMICIZUMAB
     Indication: HAEMOPHILIA A WITHOUT INHIBITORS
     Route: 058
     Dates: start: 20190823
  2. SPRYCEL [Concomitant]
     Active Substance: DASATINIB
     Route: 065
     Dates: start: 20141016, end: 20200529
  3. ADYNOVATE [Concomitant]
     Active Substance: ANTIHEMOPHILIC FACTOR, HUMAN RECOMBINANT
     Route: 065
     Dates: start: 20200512, end: 20200706

REACTIONS (1)
  - Haemarthrosis [Recovering/Resolving]

NARRATIVE: CASE EVENT DATE: 20200513
